FAERS Safety Report 16223321 (Version 1)
Quarter: 2019Q2

REPORT INFORMATION
  Report Type: Spontaneous
  Country: US (occurrence: US)
  Receive Date: 20190420
  Receipt Date: 20190420
  Transmission Date: 20190711
  Serious: Yes (Disabling)
  Sender: FDA-Public Use
  Company Number: None

PATIENT
  Age: 43 Year
  Sex: Female
  Weight: 58.5 kg

DRUGS (7)
  1. GLATOPA [Suspect]
     Active Substance: GLATIRAMER ACETATE
     Indication: RELAPSING-REMITTING MULTIPLE SCLEROSIS
     Dosage: ?          QUANTITY:12 INJECTION(S);OTHER FREQUENCY:THREE TIMES A WEEK;?
     Route: 058
     Dates: start: 20190301, end: 20190420
  2. TRU NIAGEN [Concomitant]
  3. PTEROSTILBEN [Concomitant]
  4. ADVIL [Concomitant]
     Active Substance: IBUPROFEN
  5. CBD EXTRACT [Concomitant]
  6. TYLENOL [Concomitant]
     Active Substance: ACETAMINOPHEN
  7. DOUBLE WOOD SUPPLEMENTS [Concomitant]

REACTIONS (10)
  - Fatigue [None]
  - Coordination abnormal [None]
  - Acne [None]
  - Depression [None]
  - Hypokinesia [None]
  - Cognitive disorder [None]
  - Injection site pain [None]
  - Paraesthesia [None]
  - Visual impairment [None]
  - Injection site swelling [None]

NARRATIVE: CASE EVENT DATE: 20190401
